FAERS Safety Report 13243228 (Version 1)
Quarter: 2017Q1

REPORT INFORMATION
  Report Type: Spontaneous
  Country: US (occurrence: US)
  Receive Date: 20170216
  Receipt Date: 20170216
  Transmission Date: 20170428
  Serious: Yes (Life-Threatening, Hospitalization)
  Sender: FDA-Public Use
  Company Number: None

PATIENT
  Age: 23 Year
  Sex: Female
  Weight: 56.75 kg

DRUGS (1)
  1. SKYLA [Suspect]
     Active Substance: LEVONORGESTREL

REACTIONS (6)
  - Pain [None]
  - Foetal death [None]
  - Fallopian tube perforation [None]
  - Ectopic pregnancy with contraceptive device [None]
  - Emotional disorder [None]
  - Maternal exposure during pregnancy [None]

NARRATIVE: CASE EVENT DATE: 20160512
